FAERS Safety Report 7812401-X (Version None)
Quarter: 2011Q4

REPORT INFORMATION
  Report Type: 
  Country: None (occurrence: None)
  Receive Date: 20111013
  Receipt Date: 20111004
  Transmission Date: 20120403
  Serious: Yes (Other)
  Sender: FDA-Public Use
  Company Number: CA-JNJFOC-20111004550

PATIENT
  Sex: Female
  Weight: 84 kg

DRUGS (4)
  1. REMICADE [Suspect]
     Route: 042
     Dates: start: 20070822
  2. REMICADE [Suspect]
     Route: 042
     Dates: start: 20111003
  3. LYRICA [Concomitant]
     Dates: start: 20110101
  4. REMICADE [Suspect]
     Indication: ANKYLOSING SPONDYLITIS
     Route: 042
     Dates: start: 20110418

REACTIONS (4)
  - FATIGUE [None]
  - ASTHENIA [None]
  - DELIRIUM [None]
  - DIZZINESS [None]
